FAERS Safety Report 4384941-X (Version None)
Quarter: 2004Q2

REPORT INFORMATION
  Report Type: 
  Country: None (occurrence: None)
  Receive Date: 20040625
  Receipt Date: 20040616
  Transmission Date: 20050107
  Serious: Yes (Hospitalization)
  Sender: FDA-Public Use
  Company Number: IT-ROCHE-371348

PATIENT
  Age: 67 Year
  Sex: Male

DRUGS (3)
  1. ROCEPHIN [Suspect]
     Indication: INFLUENZA
     Dosage: FORM REPORTED AS VIAL
     Route: 030
     Dates: start: 20040613, end: 20040613
  2. ASPIRIN [Concomitant]
     Indication: INFLUENZA
     Route: 048
     Dates: start: 20040611, end: 20040611
  3. CARDURA [Concomitant]
     Indication: HYPERTENSION
     Route: 048
     Dates: start: 20010101, end: 20040613

REACTIONS (4)
  - ANAPHYLACTIC REACTION [None]
  - CONTUSION [None]
  - HEAD INJURY [None]
  - SYNCOPE [None]
